FAERS Safety Report 6207210-1 (Version None)
Quarter: 2009Q2

REPORT INFORMATION
  Report Type: 
  Country: None (occurrence: None)
  Receive Date: 20090528
  Receipt Date: 20090520
  Transmission Date: 20091009
  Serious: Yes (Other)
  Sender: FDA-Public Use
  Company Number: PHHY2009DE19739

PATIENT
  Age: 70 Year
  Sex: Female

DRUGS (2)
  1. AREDIA [Suspect]
     Route: 042
  2. ZOMETA [Suspect]
     Route: 042

REACTIONS (1)
  - OSTEONECROSIS [None]
